FAERS Safety Report 6755699-1 (Version None)
Quarter: 2010Q2

REPORT INFORMATION
  Report Type: 
  Country: None (occurrence: None)
  Receive Date: 20100604
  Receipt Date: 20100528
  Transmission Date: 20101027
  Serious: Yes (Other)
  Sender: FDA-Public Use
  Company Number: NO-NOVOPROD-309377

PATIENT
  Sex: Female

DRUGS (2)
  1. EVIANA [Suspect]
     Indication: HORMONE REPLACEMENT THERAPY
     Route: 048
     Dates: start: 20090801, end: 20100201
  2. GLUCOSAMINE [Concomitant]

REACTIONS (3)
  - DEPRESSION [None]
  - IMMUNE SYSTEM DISORDER [None]
  - SLEEP DISORDER [None]
